FAERS Safety Report 23167051 (Version 2)
Quarter: 2023Q4

REPORT INFORMATION
  Report Type: Spontaneous
  Country: FR (occurrence: FR)
  Receive Date: 20231109
  Receipt Date: 20231122
  Transmission Date: 20240109
  Serious: Yes (Hospitalization, Other)
  Sender: FDA-Public Use
  Company Number: FR-TEVA-2023-FR-2942738

PATIENT
  Age: 18 Year
  Sex: Male

DRUGS (6)
  1. IBUPROFEN [Suspect]
     Active Substance: IBUPROFEN
     Indication: Cheilitis
     Dosage: 400 MG
     Route: 065
  2. MUPIROCIN [Suspect]
     Active Substance: MUPIROCIN
     Indication: Antibiotic therapy
     Dosage: RECEIVED IN NOSE AND EARS, 3 TIMES A DAY FOR 7 DAYS.
     Route: 061
  3. VALACYCLOVIR HYDROCHLORIDE [Concomitant]
     Active Substance: VALACYCLOVIR HYDROCHLORIDE
     Indication: Evidence based treatment
     Dosage: 1000 MILLIGRAM DAILY; 500 MG TWICE A DAY
     Route: 048
  4. FUSIDIC ACID [Concomitant]
     Active Substance: FUSIDIC ACID
     Indication: Evidence based treatment
     Dosage: 1000 MILLIGRAM DAILY; 500 MG TWICE A DAY
     Route: 048
  5. CHLORHEXIDINE [Concomitant]
     Active Substance: CHLORHEXIDINE\CHLORHEXIDINE GLUCONATE
     Indication: Antibiotic therapy
     Dosage: RECEIVED FOAMING SOLUTION FOR 7 DAYS
  6. BETADINE [Concomitant]
     Active Substance: POVIDONE-IODINE
     Indication: Antibiotic therapy
     Dosage: RECEIVED MOUTHWASH; 3 TIMES A DAY FOR 7 DAYS
     Route: 065

REACTIONS (5)
  - Cellulitis [Recovered/Resolved]
  - Eyelid infection [Recovered/Resolved]
  - Septic embolus [Recovered/Resolved]
  - Drug resistance [Unknown]
  - Intentional product misuse [Unknown]
